FAERS Safety Report 5480404-9 (Version None)
Quarter: 2007Q4

REPORT INFORMATION
  Report Type: 
  Country: None (occurrence: None)
  Receive Date: 20071004
  Receipt Date: 20071004
  Transmission Date: 20080405
  Serious: No
  Sender: FDA-Public Use
  Company Number: None

PATIENT
  Age: 81 Year
  Sex: Male

DRUGS (2)
  1. NAFCILLIN SODIUM [Suspect]
     Indication: OSTEOMYELITIS
     Dosage: 2GM OTHER IV
     Route: 042
     Dates: start: 20070622, end: 20070703
  2. VANCOMYCIN [Suspect]
     Dosage: 1500MG ONCE IV
     Route: 042
     Dates: start: 20070629, end: 20070629

REACTIONS (5)
  - PYREXIA [None]
  - RASH [None]
  - RENAL FAILURE ACUTE [None]
  - TYPE III IMMUNE COMPLEX MEDIATED REACTION [None]
  - VASCULITIS [None]
